FAERS Safety Report 6982144-3 (Version None)
Quarter: 2010Q3

REPORT INFORMATION
  Report Type: 
  Country: None (occurrence: None)
  Receive Date: 20100914
  Receipt Date: 20091114
  Transmission Date: 20110219
  Serious: No
  Sender: FDA-Public Use
  Company Number: US-PFIZER INC-2009299410

PATIENT
  Sex: Male

DRUGS (1)
  1. LYRICA [Suspect]
     Indication: BONE PAIN
     Dosage: 75 MG, 1X/DAY
     Route: 048
     Dates: start: 20090901, end: 20091101

REACTIONS (2)
  - DRY MOUTH [None]
  - JOINT SWELLING [None]
